FAERS Safety Report 25216392 (Version 1)
Quarter: 2025Q2

REPORT INFORMATION
  Report Type: Spontaneous
  Country: FR (occurrence: FR)
  Receive Date: 20250418
  Receipt Date: 20250418
  Transmission Date: 20250717
  Serious: Yes (Other)
  Sender: ROCHE
  Company Number: FR-ROCHE-10000257682

PATIENT
  Weight: 2.466 kg

DRUGS (3)
  1. OBINUTUZUMAB [Suspect]
     Active Substance: OBINUTUZUMAB
     Indication: Product used for unknown indication
     Route: 064
  2. OBINUTUZUMAB [Suspect]
     Active Substance: OBINUTUZUMAB
     Route: 064
  3. MYCOPHENOLATE MOFETIL [Suspect]
     Active Substance: MYCOPHENOLATE MOFETIL
     Indication: Product used for unknown indication
     Route: 064

REACTIONS (5)
  - Foetal exposure during pregnancy [Unknown]
  - Hyperlactacidaemia [Unknown]
  - Neonatal hypoxia [Unknown]
  - Foetal arrhythmia [Unknown]
  - Low birth weight baby [Unknown]
